FAERS Safety Report 11774891 (Version 1)
Quarter: 2015Q4

REPORT INFORMATION
  Report Type: Other
  Country: DK (occurrence: DK)
  Receive Date: 20151124
  Receipt Date: 20151124
  Transmission Date: 20160304
  Serious: Yes (Other)
  Sender: FDA-Public Use
  Company Number: DK-TAKEDA-2015TUS016397

PATIENT
  Age: 27 Year
  Sex: Female

DRUGS (2)
  1. AZATHIOPRIN ^ACTAVIS^ [Concomitant]
     Indication: COLITIS ULCERATIVE
     Dosage: UNK
  2. ENTYVIO [Suspect]
     Active Substance: VEDOLIZUMAB
     Indication: COLITIS ULCERATIVE
     Dosage: 350 MG, UNK
     Route: 042
     Dates: start: 20150120, end: 20150224

REACTIONS (3)
  - Vaginal haemorrhage [Recovered/Resolved]
  - Abortion spontaneous [Recovered/Resolved]
  - Dysmenorrhoea [Recovered/Resolved]

NARRATIVE: CASE EVENT DATE: 20150406
